FAERS Safety Report 12865602 (Version 1)
Quarter: 2016Q4

REPORT INFORMATION
  Report Type: Spontaneous
  Country: GB (occurrence: GB)
  Receive Date: 20161020
  Receipt Date: 20161020
  Transmission Date: 20170207
  Serious: Yes (Other)
  Sender: FDA-Public Use
  Company Number: GB-PFIZER INC-2016481973

PATIENT
  Sex: Female

DRUGS (3)
  1. IBUPROFEN. [Concomitant]
     Active Substance: IBUPROFEN
     Dosage: 400 MG, BID
     Route: 065
  2. SOLPADEINE MAX [Concomitant]
     Indication: MIGRAINE
     Dosage: ONE TABLET IN MIGRAINE CRISIS (TOOK SIX TABLETS IN THE LAST WEEK)
     Route: 065
  3. SERTRALINE HCL [Suspect]
     Active Substance: SERTRALINE HYDROCHLORIDE
     Dosage: 50 MG, DAILY (50 MG, QD)
     Route: 065
     Dates: start: 201609

REACTIONS (4)
  - Asthenia [Not Recovered/Not Resolved]
  - Influenza like illness [Not Recovered/Not Resolved]
  - Malaise [Not Recovered/Not Resolved]
  - Migraine [Not Recovered/Not Resolved]

NARRATIVE: CASE EVENT DATE: 2016
